FAERS Safety Report 25487920 (Version 1)
Quarter: 2025Q2

REPORT INFORMATION
  Report Type: Spontaneous
  Country: US (occurrence: US)
  Receive Date: 20250627
  Receipt Date: 20250627
  Transmission Date: 20250716
  Serious: No
  Sender: DR REDDYS
  Company Number: US-DRL-USA-USA/2025/06/008693

PATIENT
  Sex: Female

DRUGS (1)
  1. HABITROL [Suspect]
     Active Substance: NICOTINE
     Indication: Product used for unknown indication
     Dosage: PATIENT HAD UNKNOWINGLY WORN THREE HABITROL (NICOTINE) TRANSDERMAL SYSTEM 21MG AT ONCE FOR APPROXIMA
     Route: 062

REACTIONS (3)
  - Overdose [Unknown]
  - Nausea [Unknown]
  - Malaise [Unknown]
